FAERS Safety Report 5918862-5 (Version None)
Quarter: 2008Q4

REPORT INFORMATION
  Report Type: 
  Country: None (occurrence: None)
  Receive Date: 20081015
  Receipt Date: 20080904
  Transmission Date: 20090506
  Serious: No
  Sender: FDA-Public Use
  Company Number: US-BAYER-200833423NA

PATIENT
  Age: 21 Year
  Sex: Female
  Weight: 64 kg

DRUGS (1)
  1. OCELLA [Suspect]
     Indication: ENDOMETRIOSIS
     Route: 048
     Dates: start: 20080701

REACTIONS (2)
  - ABDOMINAL PAIN UPPER [None]
  - NO ADVERSE EVENT [None]
